FAERS Safety Report 19440420 (Version 4)
Quarter: 2021Q4

REPORT INFORMATION
  Report Type: Report from Study
  Country: None (occurrence: US)
  Receive Date: 20210621
  Receipt Date: 20211006
  Transmission Date: 20220303
  Serious: Yes (Other)
  Sender: FDA-Public Use
  Company Number: US-ABBVIE-21K-163-3952612-00

PATIENT
  Age: 64 Year
  Sex: Male

DRUGS (2)
  1. RINVOQ [Suspect]
     Active Substance: UPADACITINIB
     Indication: Rheumatoid arthritis
     Route: 048
  2. RINVOQ [Suspect]
     Active Substance: UPADACITINIB
     Dosage: 1-2 TIMES A WEEK
     Route: 048

REACTIONS (23)
  - Urinary tract obstruction [Not Recovered/Not Resolved]
  - Urinary tract infection [Not Recovered/Not Resolved]
  - Intentional product misuse [Recovered/Resolved]
  - Anaemia [Not Recovered/Not Resolved]
  - Oedematous kidney [Not Recovered/Not Resolved]
  - Bullous oedema of the bladder [Not Recovered/Not Resolved]
  - Swelling [Not Recovered/Not Resolved]
  - Prostatomegaly [Unknown]
  - Arthritis [Not Recovered/Not Resolved]
  - Renal disorder [Not Recovered/Not Resolved]
  - Prostatic obstruction [Not Recovered/Not Resolved]
  - Pain [Unknown]
  - Vision blurred [Unknown]
  - Renal failure [Not Recovered/Not Resolved]
  - Chondropathy [Not Recovered/Not Resolved]
  - Blood potassium abnormal [Not Recovered/Not Resolved]
  - Pain [Recovered/Resolved]
  - Dysstasia [Unknown]
  - Skin abrasion [Unknown]
  - Burning sensation [Unknown]
  - Adverse drug reaction [Unknown]
  - Urine flow decreased [Not Recovered/Not Resolved]
  - Arthropathy [Not Recovered/Not Resolved]

NARRATIVE: CASE EVENT DATE: 20210930
